FAERS Safety Report 7706492-4 (Version None)
Quarter: 2011Q3

REPORT INFORMATION
  Report Type: 
  Country: None (occurrence: None)
  Receive Date: 20110824
  Receipt Date: 20110819
  Transmission Date: 20111222
  Serious: Yes (Hospitalization, Other)
  Sender: FDA-Public Use
  Company Number: US-ABBOTT-11P-163-0841137-00

PATIENT
  Sex: Male
  Weight: 124.4 kg

DRUGS (15)
  1. HUMIRA [Suspect]
     Indication: ANKYLOSING SPONDYLITIS
     Route: 058
     Dates: start: 20100101, end: 20110620
  2. METHOTREXATE [Concomitant]
     Indication: ANKYLOSING SPONDYLITIS
  3. RENVELA [Concomitant]
     Indication: HYPERTENSION
  4. GLUCOSAMINE [Concomitant]
     Indication: PSORIATIC ARTHROPATHY
  5. GLUCOSAMINE [Concomitant]
     Indication: ANKYLOSING SPONDYLITIS
  6. MS CONTIN [Concomitant]
     Indication: ARTHRALGIA
  7. MS CONTIN [Concomitant]
     Indication: ANKYLOSING SPONDYLITIS
  8. METHOTREXATE [Concomitant]
     Indication: PSORIATIC ARTHROPATHY
  9. PERCOCET [Concomitant]
     Indication: ANKYLOSING SPONDYLITIS
  10. AMBIEN [Concomitant]
     Indication: PRODUCT USED FOR UNKNOWN INDICATION
  11. CYMBALTA [Concomitant]
     Indication: PRODUCT USED FOR UNKNOWN INDICATION
  12. SYNTHROID [Concomitant]
     Indication: HYPOTHYROIDISM
  13. GENERIC XANAX [Concomitant]
     Indication: INSOMNIA
  14. PERCOCET [Concomitant]
     Indication: ARTHRALGIA
  15. VITAMIN D [Concomitant]
     Indication: VITAMIN SUPPLEMENTATION

REACTIONS (7)
  - HISTOPLASMOSIS [None]
  - RENAL FAILURE ACUTE [None]
  - PYREXIA [None]
  - BRAIN OEDEMA [None]
  - BLOOD KETONE BODY [None]
  - MALAISE [None]
  - PNEUMONIA [None]
